FAERS Safety Report 8309095-6 (Version None)
Quarter: 2012Q2

REPORT INFORMATION
  Report Type: 
  Country: None (occurrence: None)
  Receive Date: 20120424
  Receipt Date: 20120410
  Transmission Date: 20120825
  Serious: Yes (Hospitalization)
  Sender: FDA-Public Use
  Company Number: FR-PFIZER INC-2012095916

PATIENT
  Age: 82 Year
  Sex: Female

DRUGS (7)
  1. ACETAMINOPHEN [Concomitant]
     Route: 048
     Dates: start: 20120127
  2. IBUPROFEN [Suspect]
     Indication: PRODUCT USED FOR UNKNOWN INDICATION
     Route: 048
     Dates: start: 20120205, end: 20120206
  3. RIVAROXABAN [Suspect]
     Indication: KNEE ARTHROPLASTY
     Route: 048
     Dates: start: 20120125, end: 20120206
  4. NEBIVOLOL [Concomitant]
     Route: 048
  5. RIVAROXABAN [Suspect]
     Indication: THROMBOSIS PROPHYLAXIS
  6. ESIDRIX [Concomitant]
     Route: 048
  7. CODEINE PHOSPHATE AND ACETAMINOPHEN [Concomitant]
     Route: 048
     Dates: start: 20120202

REACTIONS (2)
  - HAEMATOMA [None]
  - PAIN IN EXTREMITY [None]
